FAERS Safety Report 7731041-4 (Version None)
Quarter: 2011Q3

REPORT INFORMATION
  Report Type: 
  Country: None (occurrence: None)
  Receive Date: 20110906
  Receipt Date: 20110906
  Transmission Date: 20111222
  Serious: Yes (Death, Life-Threatening, Hospitalization, Disabling, Congenital Anomaly, Other)
  Sender: FDA-Public Use
  Company Number: None

PATIENT
  Age: 50 Year
  Sex: Female
  Weight: 97.522 kg

DRUGS (1)
  1. NEXIUM [Suspect]
     Indication: GASTROOESOPHAGEAL REFLUX DISEASE
     Dosage: 1
     Route: 048
     Dates: start: 19890710, end: 20100507

REACTIONS (37)
  - FATIGUE [None]
  - EAR INFECTION [None]
  - VISUAL ACUITY REDUCED [None]
  - HYPERTENSION [None]
  - ANXIETY [None]
  - MUSCLE TWITCHING [None]
  - ANGINA PECTORIS [None]
  - PERSONALITY CHANGE [None]
  - MUSCLE SPASMS [None]
  - IRRITABILITY [None]
  - IMPAIRED WORK ABILITY [None]
  - DEAFNESS [None]
  - WEIGHT INCREASED [None]
  - CHEST DISCOMFORT [None]
  - HEART RATE IRREGULAR [None]
  - MEMORY IMPAIRMENT [None]
  - TENSION HEADACHE [None]
  - DIARRHOEA [None]
  - TYPE 2 DIABETES MELLITUS [None]
  - PANIC ATTACK [None]
  - DELIRIUM [None]
  - SPEECH DISORDER [None]
  - INFLUENZA LIKE ILLNESS [None]
  - FIBROMYALGIA [None]
  - APATHY [None]
  - DEPRESSION [None]
  - DYSPNOEA [None]
  - PLASMA PROTEIN METABOLISM DISORDER [None]
  - INSOMNIA [None]
  - PALPITATIONS [None]
  - VISION BLURRED [None]
  - CONFUSIONAL STATE [None]
  - DISTURBANCE IN ATTENTION [None]
  - STRESS [None]
  - LETHARGY [None]
  - LEARNING DISORDER [None]
  - BLOOD MAGNESIUM DECREASED [None]
